FAERS Safety Report 10219029 (Version 1)
Quarter: 2014Q2

REPORT INFORMATION
  Report Type: Report from Study
  Country: BR (occurrence: BR)
  Receive Date: 20140605
  Receipt Date: 20140605
  Transmission Date: 20141212
  Serious: Yes (Death, Hospitalization, Other)
  Sender: FDA-Public Use
  Company Number: PHHY2014BR067954

PATIENT
  Sex: Male

DRUGS (10)
  1. TRILEPTAL [Suspect]
     Indication: CONVULSION
     Dosage: 1 DF, BID
     Route: 048
  2. URBANIL [Concomitant]
     Indication: CONVULSION
     Dosage: UNK UKN, UNK
  3. ENALAPRIL [Concomitant]
     Indication: HYPERTENSION
     Dosage: UNK UKN,  (EVERY 12 HOURS)
     Dates: start: 2002
  4. HYDROCHLOROTHIAZIDE [Concomitant]
     Indication: HYPERTENSION
     Dosage: UNK UKN, QD
     Dates: start: 2002
  5. VASOGARD [Concomitant]
     Indication: ANTICOAGULANT THERAPY
     Dosage: UNK UKN, BID
     Dates: start: 2008
  6. SELOKEN [Concomitant]
     Indication: BLOOD PRESSURE ABNORMAL
     Dosage: UNK UKN, (EVERY 12 HOURS)
     Dates: start: 2008
  7. MAREVAN [Concomitant]
     Indication: ANTICOAGULANT THERAPY
     Dosage: UNK UKN, QD
  8. DIAMICRON MR [Concomitant]
     Indication: DIABETES MELLITUS
     Dosage: 2 DF, (IN THE MORNING)
     Dates: start: 2002
  9. GLUCOFORMIN [Concomitant]
     Indication: DIABETES MELLITUS
     Dosage: UNK UKN, QD
     Dates: start: 2002
  10. METFORMIN [Concomitant]
     Dosage: UNK UKN, UNK

REACTIONS (8)
  - Cardiogenic shock [Fatal]
  - Atrioventricular block [Fatal]
  - Ischaemic cardiomyopathy [Fatal]
  - Diabetes mellitus [Fatal]
  - Limb injury [Unknown]
  - Skin discolouration [Unknown]
  - Arrhythmia [Unknown]
  - Cerebrovascular accident [Unknown]
